FAERS Safety Report 10771216 (Version 2)
Quarter: 2015Q1

REPORT INFORMATION
  Report Type: Spontaneous
  Country: NZ (occurrence: NZ)
  Receive Date: 20150206
  Receipt Date: 20150209
  Transmission Date: 20150721
  Serious: Yes (Death, Other)
  Sender: FDA-Public Use
  Company Number: PHHY2015NZ014281

PATIENT
  Age: 58 Year
  Sex: Male

DRUGS (1)
  1. DICLOFENAC [Suspect]
     Active Substance: DICLOFENAC
     Indication: PANCREATITIS
     Dosage: 75 MG X 10 OVER 4 DAYS
     Route: 030

REACTIONS (5)
  - Necrotising fasciitis [Unknown]
  - Respiratory failure [Unknown]
  - Renal failure [Unknown]
  - Death [Fatal]
  - Sepsis [Unknown]
